FAERS Safety Report 21124710 (Version 1)
Quarter: 2022Q3

REPORT INFORMATION
  Report Type: Spontaneous
  Country: AT (occurrence: AT)
  Receive Date: 20220725
  Receipt Date: 20220725
  Transmission Date: 20221027
  Serious: Yes (Other)
  Sender: FDA-Public Use
  Company Number: None

PATIENT
  Age: 47 Year
  Sex: Female

DRUGS (4)
  1. CARBOPLATIN [Suspect]
     Active Substance: CARBOPLATIN
     Indication: Non-small cell lung cancer
  2. PACLITAXEL [Suspect]
     Active Substance: PACLITAXEL
     Indication: Non-small cell lung cancer
  3. ATEZOLIZUMAB [Suspect]
     Active Substance: ATEZOLIZUMAB
     Indication: Non-small cell lung cancer
  4. AVASTIN [Suspect]
     Active Substance: BEVACIZUMAB
     Indication: Non-small cell lung cancer

REACTIONS (8)
  - Alopecia [Unknown]
  - Immune-mediated pancreatitis [Unknown]
  - Febrile neutropenia [Unknown]
  - Hypoaesthesia [Unknown]
  - Epistaxis [Unknown]
  - Asthenia [Unknown]
  - Immune-mediated enterocolitis [Unknown]
  - Oligoastrocytoma [Unknown]

NARRATIVE: CASE EVENT DATE: 20200601
